FAERS Safety Report 8107719 (Version 6)
Quarter: 2013Q1

REPORT INFORMATION
  Report Type: Spontaneous
  Country: US (occurrence: US)
  Receive Date: 20110826
  Receipt Date: 20130128
  Transmission Date: 20140127
  Serious: Yes (Hospitalization)
  Sender: FDA-Public Use
  Company Number: US-BIOGENIDEC-2011BI032117

PATIENT
  Age: 48 None
  Sex: Female

DRUGS (1)
  1. TYSABRI [Suspect]
     Indication: MULTIPLE SCLEROSIS
     Route: 042
     Dates: start: 20100118

REACTIONS (8)
  - Essential tremor [Recovered/Resolved]
  - Airway complication of anaesthesia [Unknown]
  - Incision site pain [Unknown]
  - Fatigue [Not Recovered/Not Resolved]
  - Optic neuritis [Recovered/Resolved]
  - Procedural pain [Recovered/Resolved]
  - Procedural vomiting [Recovered/Resolved]
  - Headache [Not Recovered/Not Resolved]
